FAERS Safety Report 17453179 (Version 2)
Quarter: 2020Q2

REPORT INFORMATION
  Report Type: Report from Study
  Country: US (occurrence: US)
  Receive Date: 20200224
  Receipt Date: 20200403
  Transmission Date: 20200713
  Serious: No
  Sender: FDA-Public Use
  Company Number: NVSC2020US049309

PATIENT
  Age: 82 Year
  Sex: Female

DRUGS (1)
  1. BEOVU [Suspect]
     Active Substance: BROLUCIZUMAB-DBLL
     Dosage: UNK
     Route: 047
     Dates: start: 20200211

REACTIONS (3)
  - Vision blurred [Unknown]
  - Intra-ocular injection complication [Unknown]
  - Cystitis [Unknown]

NARRATIVE: CASE EVENT DATE: 20200211
